FAERS Safety Report 17474553 (Version 1)
Quarter: 2020Q1

REPORT INFORMATION
  Report Type: Spontaneous
  Country: JP (occurrence: JP)
  Receive Date: 20200228
  Receipt Date: 20200228
  Transmission Date: 20200409
  Serious: Yes (Other)
  Sender: FDA-Public Use
  Company Number: JP-JNJFOC-20190542975

PATIENT
  Age: 48 Year
  Sex: Female

DRUGS (4)
  1. STELARA [Suspect]
     Active Substance: USTEKINUMAB
     Indication: CROHN^S DISEASE
     Dosage: INJECTION, INTRAVENOUS
     Route: 058
     Dates: start: 20190328, end: 20190328
  2. STELARA [Suspect]
     Active Substance: USTEKINUMAB
     Route: 058
     Dates: end: 20190522
  3. CLARITH [Concomitant]
     Active Substance: CLARITHROMYCIN
     Indication: OTITIS MEDIA
     Route: 048
  4. RHEUMATREX [Concomitant]
     Active Substance: METHOTREXATE SODIUM
     Indication: ARTHRALGIA
     Route: 048
     Dates: start: 20190325

REACTIONS (3)
  - Nasopharyngitis [Unknown]
  - Crohn^s disease [Unknown]
  - Otitis media [Recovered/Resolved]

NARRATIVE: CASE EVENT DATE: 2019
